FAERS Safety Report 9095481 (Version 2)
Quarter: 2013Q1

REPORT INFORMATION
  Report Type: Spontaneous
  Country: CA (occurrence: CA)
  Receive Date: 20130219
  Receipt Date: 20130222
  Transmission Date: 20140127
  Serious: Yes (Other)
  Sender: FDA-Public Use
  Company Number: PHHY2013CA014455

PATIENT
  Age: 52 Year
  Sex: Male

DRUGS (5)
  1. ZIPRASIDONE [Suspect]
     Dosage: 40 MG, BID
     Dates: start: 200906
  2. ZIPRASIDONE [Suspect]
     Dosage: 80 MG IN MORNING
  3. ZIPRASIDONE [Suspect]
     Dosage: 120 MG, UNK
  4. ZIPRASIDONE [Suspect]
     Dosage: 80 MG, UNK
  5. BENZATROPINE [Concomitant]
     Indication: GINGIVAL PAIN

REACTIONS (4)
  - Extrapyramidal disorder [Recovered/Resolved]
  - Gingival pain [Recovered/Resolved]
  - Hypophagia [Recovered/Resolved]
  - Middle insomnia [Recovered/Resolved]
